FAERS Safety Report 4360410-8 (Version None)
Quarter: 2004Q2

REPORT INFORMATION
  Report Type: 
  Country: None (occurrence: None)
  Receive Date: 20040514
  Receipt Date: 20040429
  Transmission Date: 20050107
  Serious: Yes (Life-Threatening, Hospitalization, Other)
  Sender: FDA-Public Use
  Company Number: 2004-BP-00645YA

PATIENT
  Age: 72 Year
  Sex: Male

DRUGS (3)
  1. TAMSULOSIN [Suspect]
     Dosage: 0.4 MG
     Route: 048
     Dates: start: 20031201
  2. VOLUVEN (HETASTARCH) [Suspect]
     Dosage: 500 ML
     Route: 048
  3. BUPIVACAINE HCL [Concomitant]

REACTIONS (3)
  - ANAPHYLACTIC SHOCK [None]
  - ANGIONEUROTIC OEDEMA [None]
  - DRUG INTERACTION [None]
